FAERS Safety Report 7535203-0 (Version None)
Quarter: 2011Q2

REPORT INFORMATION
  Report Type: 
  Country: None (occurrence: None)
  Receive Date: 20110609
  Receipt Date: 20090416
  Transmission Date: 20111010
  Serious: Yes (Death, Hospitalization, Other)
  Sender: FDA-Public Use
  Company Number: PHMT2006CA00924

PATIENT
  Sex: Female

DRUGS (4)
  1. CHEMOTHERAPEUTICS,OTHER [Concomitant]
     Dates: start: 20060425
  2. CHEMOTHERAPEUTICS,OTHER [Concomitant]
     Dates: start: 20061004
  3. SANDOSTATIN LAR [Suspect]
     Indication: DIARRHOEA
     Dosage: 20 MG, ONCE A MONTH
     Dates: start: 20060207
  4. CHEMOTHERAPEUTICS,OTHER [Concomitant]
     Dosage: UNK, UNK
     Dates: start: 20051101

REACTIONS (3)
  - DEATH [None]
  - PERITONEAL PERFORATION [None]
  - WHITE BLOOD CELL COUNT DECREASED [None]
